FAERS Safety Report 5378422-4 (Version None)
Quarter: 2007Q4

REPORT INFORMATION
  Report Type: 
  Country: None (occurrence: None)
  Receive Date: 20070702
  Receipt Date: 20070702
  Transmission Date: 20080405
  Serious: Yes (Other)
  Sender: FDA-Public Use
  Company Number: None

PATIENT
  Age: 24 Year
  Sex: Female
  Weight: 71 kg

DRUGS (6)
  1. STAVUDINE [Suspect]
     Indication: HIV INFECTION
     Dosage: 40 MG TWICE A DAY ORAL
     Route: 048
     Dates: start: 20061222, end: 20070611
  2. LAMIVUDINE [Suspect]
     Indication: HIV INFECTION
     Dosage: 150 MG TWICE A DAY ORAL
     Route: 048
     Dates: start: 20061222, end: 20070611
  3. KALETRA [Suspect]
     Indication: HIV INFECTION
     Dosage: 400MG/100MG TWICE A DAY ORAL
     Route: 048
     Dates: start: 20061222
  4. COTRIM [Concomitant]
  5. FOLATE [Concomitant]
  6. VITAMIN B [Concomitant]

REACTIONS (4)
  - ABDOMINAL PAIN LOWER [None]
  - DRUG EXPOSURE DURING PREGNANCY [None]
  - LOWER RESPIRATORY TRACT INFECTION [None]
  - STILLBIRTH [None]
